FAERS Safety Report 18565811 (Version 1)
Quarter: 2020Q4

REPORT INFORMATION
  Report Type: Spontaneous
  Country: US (occurrence: US)
  Receive Date: 20201201
  Receipt Date: 20201201
  Transmission Date: 20210114
  Serious: Yes (Disabling, Other)
  Sender: FDA-Public Use
  Company Number: US-PURDUE-USA-2020-0178717

PATIENT
  Sex: Female

DRUGS (13)
  1. HYDROCODONE BITARTRATE/ACETAMINOPHEN [Suspect]
     Active Substance: ACETAMINOPHEN\HYDROCODONE BITARTRATE
     Indication: ROAD TRAFFIC ACCIDENT
     Route: 048
  2. OXYCODONE/ ACETAMINOPHEN TABLETS [Suspect]
     Active Substance: ACETAMINOPHEN\OXYCODONE HYDROCHLORIDE
     Indication: ROAD TRAFFIC ACCIDENT
     Route: 048
  3. OXYCODONE HCL CR TABLETS (SIMILAR TO NDA 22-272) [Suspect]
     Active Substance: OXYCODONE HYDROCHLORIDE
     Indication: ROAD TRAFFIC ACCIDENT
     Route: 048
  4. GABAPENTIN. [Suspect]
     Active Substance: GABAPENTIN
     Indication: ROAD TRAFFIC ACCIDENT
     Route: 065
  5. BUPRENORPHINE TRANSDERMAL PATCH (SIMILAR TO NDA 21-306) [Suspect]
     Active Substance: BUPRENORPHINE
     Indication: ROAD TRAFFIC ACCIDENT
     Route: 062
  6. MORPHINE SULFATE EXTENDED-RELEASE TABLETS (RHODES 74-862) [Suspect]
     Active Substance: MORPHINE
     Indication: ROAD TRAFFIC ACCIDENT
     Route: 048
  7. OXYIR [Suspect]
     Active Substance: OXYCODONE HYDROCHLORIDE
     Indication: ROAD TRAFFIC ACCIDENT
     Route: 065
  8. OXYCONTIN [Suspect]
     Active Substance: OXYCODONE HYDROCHLORIDE
     Indication: ROAD TRAFFIC ACCIDENT
     Route: 048
  9. DILAUDID [Suspect]
     Active Substance: HYDROMORPHONE HYDROCHLORIDE
     Indication: ROAD TRAFFIC ACCIDENT
     Route: 048
  10. HYDROMORPHONE TABLET (RHODES) [Suspect]
     Active Substance: HYDROMORPHONE
     Indication: ROAD TRAFFIC ACCIDENT
     Route: 048
  11. OPANA [Suspect]
     Active Substance: OXYMORPHONE HYDROCHLORIDE
     Indication: ROAD TRAFFIC ACCIDENT
     Route: 065
  12. NUCYNTA [Suspect]
     Active Substance: TAPENTADOL HYDROCHLORIDE
     Indication: ROAD TRAFFIC ACCIDENT
     Route: 065
  13. OXYCODONE HCL TABLETS (RHODES 91-490) [Suspect]
     Active Substance: OXYCODONE HYDROCHLORIDE
     Indication: ROAD TRAFFIC ACCIDENT
     Route: 048

REACTIONS (24)
  - Road traffic accident [Unknown]
  - Headache [Unknown]
  - Skin abrasion [Unknown]
  - Impaired reasoning [Unknown]
  - Feeling of despair [Unknown]
  - Seizure [Unknown]
  - Concussion [Unknown]
  - Injury [Unknown]
  - Depression [Unknown]
  - Tooth loss [Unknown]
  - Judgement impaired [Unknown]
  - Dental caries [Unknown]
  - Fear [Unknown]
  - Ecchymosis [Unknown]
  - Drug dependence [Unknown]
  - Vomiting [Unknown]
  - Skin lesion [Unknown]
  - Tooth injury [Unknown]
  - Skin laceration [Unknown]
  - Antisocial behaviour [Unknown]
  - Overdose [Unknown]
  - Contusion [Unknown]
  - Anxiety [Unknown]
  - Derealisation [Unknown]
